FAERS Safety Report 6448274-X (Version None)
Quarter: 2009Q4

REPORT INFORMATION
  Report Type: 
  Country: None (occurrence: None)
  Receive Date: 20091120
  Receipt Date: 20091110
  Transmission Date: 20100525
  Serious: Yes (Hospitalization)
  Sender: FDA-Public Use
  Company Number: DE-BRISTOL-MYERS SQUIBB COMPANY-14854350

PATIENT
  Age: 57 Year
  Sex: Female

DRUGS (9)
  1. ABILIFY [Suspect]
     Indication: BIPOLAR DISORDER
     Dosage: TILL 3MAY09:5MG/D FROM 4MAY09-ONG:10MG/D
     Route: 048
     Dates: start: 20090430
  2. ABILIFY [Suspect]
     Indication: DEPRESSION
     Dosage: TILL 3MAY09:5MG/D FROM 4MAY09-ONG:10MG/D
     Route: 048
     Dates: start: 20090430
  3. VALPROIC ACID [Suspect]
     Dosage: UNK-29APR09:2500MG 30APR-6MAY:2000MG 7MAY-8MAY:1500MG 9MAY-11MAY:1000MG 12MAY-13MAY09:500MG
     Route: 048
     Dates: end: 20090513
  4. CYMBALTA [Concomitant]
     Dosage: UNK-27APR09:90MG 28APR-ONG:120MG
     Route: 048
  5. LAMOTRIGINE [Concomitant]
     Dosage: UNK-29APR09:150MG 30APR09-ONG:200MG
     Route: 048
  6. LORAZEPAM [Concomitant]
     Dosage: 29APR09-5MAY09:1.5MG 6MAY09-7MAY09:1MG
     Route: 048
     Dates: start: 20090429, end: 20090507
  7. MELPERONE HCL [Concomitant]
     Dosage: 30APR09-5MAY09:50MG 6MAY09-7MAY09:25MG
     Route: 048
     Dates: start: 20090430, end: 20090507
  8. JODID [Concomitant]
     Route: 048
  9. MIRTAZAPINE [Concomitant]
     Route: 048

REACTIONS (1)
  - ENCEPHALOPATHY [None]
